FAERS Safety Report 11171521 (Version 1)
Quarter: 2015Q2

REPORT INFORMATION
  Report Type: Spontaneous
  Country: DK (occurrence: DK)
  Receive Date: 20150608
  Receipt Date: 20150608
  Transmission Date: 20150821
  Serious: Yes (Disabling)
  Sender: FDA-Public Use
  Company Number: DK-ASTRAZENECA-2015SE53992

PATIENT
  Age: 28090 Day
  Sex: Female
  Weight: 80 kg

DRUGS (1)
  1. METOPROLOL TARTRATE. [Suspect]
     Active Substance: METOPROLOL TARTRATE
     Indication: ATRIAL FIBRILLATION
     Route: 048
     Dates: start: 20150415

REACTIONS (2)
  - Dyspnoea [Not Recovered/Not Resolved]
  - Generalised oedema [Not Recovered/Not Resolved]

NARRATIVE: CASE EVENT DATE: 20150510
